FAERS Safety Report 4462048-0 (Version None)
Quarter: 2004Q3

REPORT INFORMATION
  Report Type: 
  Country: None (occurrence: None)
  Receive Date: 20040924
  Receipt Date: 20040915
  Transmission Date: 20050211
  Serious: Yes (Death, Hospitalization)
  Sender: FDA-Public Use
  Company Number: 2004S1000189

PATIENT
  Age: 64 Year
  Sex: Female

DRUGS (7)
  1. CUBICIN [Suspect]
     Indication: GLYCOPEPTIDE ANTIBIOTIC RESISTANT ENTEROCOCCAL INFECTION
     Dosage: 400 MG; Q48H; IV
     Route: 042
     Dates: start: 20040610, end: 20040701
  2. AZTREONAM [Concomitant]
  3. VANCOMYCIN [Concomitant]
  4. LINEZOLID [Concomitant]
  5. CIPROFLOXACIN [Concomitant]
  6. AMIKACIN [Concomitant]
  7. GENTAMYCIN SULFATE [Concomitant]

REACTIONS (5)
  - BACTERAEMIA [None]
  - BLOOD CULTURE POSITIVE [None]
  - CULTURE URINE POSITIVE [None]
  - ENTEROCOCCAL INFECTION [None]
  - PYREXIA [None]
